FAERS Safety Report 10559998 (Version 2)
Quarter: 2014Q4

REPORT INFORMATION
  Report Type: Spontaneous
  Country: BR (occurrence: BR)
  Receive Date: 20141103
  Receipt Date: 20141111
  Transmission Date: 20150529
  Serious: Yes (Other)
  Sender: FDA-Public Use
  Company Number: BR-SA-2014SA146579

PATIENT
  Age: 35 Year
  Sex: Female
  Weight: 66 kg

DRUGS (1)
  1. CEREZYME [Suspect]
     Active Substance: IMIGLUCERASE
     Indication: GAUCHER^S DISEASE
     Dosage: 9 VIALS/INFUSION DOSE:54.54 UNIT(S)/KILOGRAM BODYWEIGHT
     Route: 041
     Dates: start: 20010101

REACTIONS (2)
  - Depression [Unknown]
  - Intentional self-injury [Recovered/Resolved]
